FAERS Safety Report 5149223-7 (Version None)
Quarter: 2006Q4

REPORT INFORMATION
  Report Type: 
  Country: None (occurrence: None)
  Receive Date: 20061113
  Receipt Date: 20050916
  Transmission Date: 20070319
  Serious: No
  Sender: FDA-Public Use
  Company Number: 418104

PATIENT
  Age: 79 Year
  Sex: Female

DRUGS (5)
  1. COREG [Suspect]
     Indication: DRUG USE FOR UNKNOWN INDICATION
     Dosage: 12.5MG TWICE PER DAY
     Route: 048
     Dates: start: 20050701
  2. COUMADIN [Concomitant]
  3. PREVACID [Concomitant]
  4. LASIX [Concomitant]
  5. SYNTHROID [Concomitant]

REACTIONS (1)
  - ALOPECIA [None]
